FAERS Safety Report 6632101-1 (Version None)
Quarter: 2010Q1

REPORT INFORMATION
  Report Type: 
  Country: None (occurrence: None)
  Receive Date: 20100312
  Receipt Date: 20100308
  Transmission Date: 20100710
  Serious: Yes (Death, Hospitalization)
  Sender: FDA-Public Use
  Company Number: NL-CELGENEUS-114-21880-10030800

PATIENT
  Sex: Male
  Weight: 69 kg

DRUGS (8)
  1. REVLIMID [Suspect]
     Indication: MULTIPLE MYELOMA
     Route: 048
     Dates: start: 20091218, end: 20091228
  2. VELCADE [Suspect]
     Indication: MULTIPLE MYELOMA
     Route: 051
     Dates: start: 20091218, end: 20091218
  3. DEXAMETHASONE [Suspect]
     Indication: MULTIPLE MYELOMA
     Route: 048
     Dates: start: 20091218, end: 20091228
  4. PREGABALIN [Concomitant]
     Route: 048
     Dates: start: 20090601
  5. PREDNISONE [Concomitant]
     Route: 048
     Dates: start: 20090301, end: 20091228
  6. METOPROLOL TARTRATE [Concomitant]
     Indication: HYPERTENSION
     Route: 048
     Dates: end: 20091228
  7. CLODRONIC ACID [Concomitant]
     Indication: MULTIPLE MYELOMA
     Route: 048
  8. PANTOZOL [Concomitant]
     Route: 048
     Dates: end: 20091228

REACTIONS (2)
  - MULTIPLE MYELOMA [None]
  - RENAL FAILURE [None]
